FAERS Safety Report 5100545-5 (Version None)
Quarter: 2006Q3

REPORT INFORMATION
  Report Type: 
  Country: None (occurrence: None)
  Receive Date: 20060909
  Receipt Date: 20060830
  Transmission Date: 20061208
  Serious: Yes (Hospitalization, Other)
  Sender: FDA-Public Use
  Company Number: US-ABBOTT-06P-163-0342739-00

PATIENT
  Age: 35 Year
  Sex: Female
  Weight: 78 kg

DRUGS (4)
  1. DILAUDID [Suspect]
     Indication: PAIN
     Route: 042
     Dates: start: 20060415, end: 20060420
  2. T/I CONTROL [Suspect]
     Indication: DRUG USE FOR UNKNOWN INDICATION
  3. PARACETAMOL [Concomitant]
     Indication: HEADACHE
     Dates: start: 19910101
  4. ALBUTEROL SPIROS [Concomitant]
     Indication: PULMONARY FUNCTION TEST
     Dates: start: 20060316, end: 20060316

REACTIONS (7)
  - ANIMAL BITE [None]
  - ANIMAL SCRATCH [None]
  - BLOOD PRESSURE DECREASED [None]
  - CELLULITIS [None]
  - CHEST PAIN [None]
  - LEUKOCYTOSIS [None]
  - TENOSYNOVITIS [None]
